FAERS Safety Report 10657640 (Version 1)
Quarter: 2014Q4

REPORT INFORMATION
  Report Type: Spontaneous
  Country: US (occurrence: US)
  Receive Date: 20141217
  Receipt Date: 20141217
  Transmission Date: 20150529
  Serious: No
  Sender: FDA-Public Use
  Company Number: US-PFIZER INC-2014343609

PATIENT
  Sex: Female

DRUGS (3)
  1. CYMBALTA [Interacting]
     Active Substance: DULOXETINE HYDROCHLORIDE
     Indication: PAIN
     Dosage: UNK, 1X/DAY (IN AM )
  2. PAMELOR [Interacting]
     Active Substance: NORTRIPTYLINE HYDROCHLORIDE
     Indication: PAIN
     Dosage: UNK, 1X/DAY (IN PM)
  3. LYRICA [Suspect]
     Active Substance: PREGABALIN
     Indication: FIBROMYALGIA
     Dosage: UNK

REACTIONS (1)
  - Drug interaction [Unknown]
